FAERS Safety Report 23221533 (Version 1)
Quarter: 2023Q4

REPORT INFORMATION
  Report Type: Spontaneous
  Country: US (occurrence: US)
  Receive Date: 20231123
  Receipt Date: 20231123
  Transmission Date: 20240110
  Serious: No
  Sender: FDA-Public Use
  Company Number: US-STRIDES ARCOLAB LIMITED-2023SP009321

PATIENT
  Age: 61 Year
  Sex: Female
  Weight: 53.515 kg

DRUGS (2)
  1. PROPAFENONE [Suspect]
     Active Substance: PROPAFENONE
     Indication: Cardiac disorder
     Dosage: UNK, EVERY 12 HRS (02 CAPSULES A DAY)
     Route: 048
     Dates: start: 20230605
  2. PROPAFENONE [Suspect]
     Active Substance: PROPAFENONE
     Dosage: UNK
     Route: 048
     Dates: start: 20230606

REACTIONS (1)
  - Taste disorder [Not Recovered/Not Resolved]

NARRATIVE: CASE EVENT DATE: 20230605
